FAERS Safety Report 5461085-7 (Version None)
Quarter: 2007Q3

REPORT INFORMATION
  Report Type: 
  Country: None (occurrence: None)
  Receive Date: 20070919
  Receipt Date: 20070919
  Transmission Date: 20080115
  Serious: No
  Sender: FDA-Public Use
  Company Number: None

PATIENT
  Sex: Female
  Weight: 104.7809 kg

DRUGS (1)
  1. TOPROL-XL [Suspect]
     Indication: SUPRAVENTRICULAR TACHYCARDIA
     Dosage: 100MG P.O. QD
     Route: 048

REACTIONS (3)
  - MEDICATION ERROR [None]
  - SINUS TACHYCARDIA [None]
  - TREATMENT NONCOMPLIANCE [None]
